FAERS Safety Report 7866663-3 (Version None)
Quarter: 2011Q4

REPORT INFORMATION
  Report Type: 
  Country: None (occurrence: None)
  Receive Date: 20111028
  Receipt Date: 20110721
  Transmission Date: 20120403
  Serious: No
  Sender: FDA-Public Use
  Company Number: US-GLAXOSMITHKLINE-A0937571A

PATIENT
  Age: 46 Year
  Sex: Female

DRUGS (4)
  1. ZANTAC [Concomitant]
  2. ADVAIR DISKUS 100/50 [Suspect]
     Indication: ASTHMA
     Dosage: 1PUFF TWICE PER DAY
     Route: 055
     Dates: start: 20110601
  3. TAMOXIFEN CITRATE [Concomitant]
  4. ALLEGRA [Concomitant]

REACTIONS (6)
  - GENERALISED ERYTHEMA [None]
  - ERYTHEMA [None]
  - HEAT RASH [None]
  - JOINT STIFFNESS [None]
  - HYPERSENSITIVITY [None]
  - MUSCULOSKELETAL STIFFNESS [None]
